FAERS Safety Report 19265402 (Version 1)
Quarter: 2021Q2

REPORT INFORMATION
  Report Type: Report from Study
  Country: JP (occurrence: JP)
  Receive Date: 20210517
  Receipt Date: 20210517
  Transmission Date: 20210717
  Serious: Yes (Hospitalization)
  Sender: FDA-Public Use
  Company Number: JP-CELGENEUS-JPN-20210502105

PATIENT
  Age: 22 Year
  Sex: Male
  Weight: 52 kg

DRUGS (5)
  1. LAMOTRIGINE. [Concomitant]
     Active Substance: LAMOTRIGINE
     Indication: EPILEPSY
     Dosage: 150 MG X 2 X 1 DAYS
     Route: 048
     Dates: start: 2013
  2. BIOFERMIN?R [Concomitant]
     Indication: COLITIS ULCERATIVE
     Dosage: 36 MG X 3 X 1 DAYS
     Route: 048
     Dates: start: 20190705
  3. OZANIMOD. [Suspect]
     Active Substance: OZANIMOD
     Indication: COLITIS
     Dosage: 1 CAPSULE X 1 X 1 DAYS
     Route: 048
     Dates: start: 20190920, end: 20190923
  4. MIYA?BM [Concomitant]
     Active Substance: CLOSTRIDIUM BUTYRICUM SPORES STRAIN M-55
     Indication: COLITIS ULCERATIVE
     Dosage: 120 MG X 3 X 1 DAYS
     Route: 048
     Dates: start: 20190705
  5. VONOPRAZAN FUMARATE [Concomitant]
     Active Substance: VONOPRAZAN FUMARATE
     Indication: PROPHYLAXIS
     Dosage: 10 MG X 1 X 1 DAYS
     Route: 048
     Dates: start: 20190802

REACTIONS (1)
  - Appendicitis [Not Recovered/Not Resolved]

NARRATIVE: CASE EVENT DATE: 20210508
